FAERS Safety Report 8062905-2 (Version None)
Quarter: 2012Q1

REPORT INFORMATION
  Report Type: 
  Country: None (occurrence: None)
  Receive Date: 20120123
  Receipt Date: 20120123
  Transmission Date: 20120608
  Serious: Yes (Hospitalization)
  Sender: FDA-Public Use
  Company Number: None

PATIENT
  Sex: Male
  Weight: 64 kg

DRUGS (10)
  1. ERAXIS [Suspect]
     Indication: SYSTEMIC CANDIDA
     Dosage: 100 MG
     Route: 042
     Dates: start: 20120116, end: 20120118
  2. CHLORHEXIDINE GLUCONATE [Concomitant]
  3. VANCOMYCIN [Concomitant]
     Route: 042
  4. ASPIRIN [Concomitant]
     Route: 048
  5. METRONIDAZOLE [Concomitant]
     Route: 042
  6. IPRATROPIUM BROMIDE [Concomitant]
  7. CIPROFLOXACIN [Concomitant]
     Route: 042
  8. HEPARIN [Concomitant]
     Route: 058
  9. ALBUTEROL [Concomitant]
  10. ZOSYN [Concomitant]
     Route: 042

REACTIONS (5)
  - INTERNATIONAL NORMALISED RATIO INCREASED [None]
  - LABORATORY TEST INTERFERENCE [None]
  - RENAL FAILURE [None]
  - COAGULOPATHY [None]
  - HEPARIN-INDUCED THROMBOCYTOPENIA [None]
